FAERS Safety Report 7214515-4 (Version None)
Quarter: 2010Q4

REPORT INFORMATION
  Report Type: 
  Country: None (occurrence: None)
  Receive Date: 20101227
  Receipt Date: 20101217
  Transmission Date: 20110411
  Serious: Yes (Hospitalization)
  Sender: FDA-Public Use
  Company Number: 2010SP061075

PATIENT
  Age: 48 Year
  Sex: Male

DRUGS (8)
  1. REMERGIL (MIRTAZAPINE /01293201/) [Suspect]
     Indication: DEPRESSION
     Dosage: 30 MG; QD; PO, 45 MG; QD; PO, 60 MG; QD; PO, 15 MG; QD; PO
     Route: 048
     Dates: start: 20100727, end: 20100825
  2. REMERGIL (MIRTAZAPINE /01293201/) [Suspect]
     Indication: DEPRESSION
     Dosage: 30 MG; QD; PO, 45 MG; QD; PO, 60 MG; QD; PO, 15 MG; QD; PO
     Route: 048
     Dates: start: 20100826, end: 20100901
  3. REMERGIL (MIRTAZAPINE /01293201/) [Suspect]
     Indication: DEPRESSION
     Dosage: 30 MG; QD; PO, 45 MG; QD; PO, 60 MG; QD; PO, 15 MG; QD; PO
     Route: 048
     Dates: start: 20100902, end: 20100908
  4. REMERGIL (MIRTAZAPINE /01293201/) [Suspect]
     Indication: DEPRESSION
     Dosage: 30 MG; QD; PO, 45 MG; QD; PO, 60 MG; QD; PO, 15 MG; QD; PO
     Route: 048
     Dates: start: 20100909, end: 20100915
  5. REMERGIL (MIRTAZAPINE /01293201/) [Suspect]
     Indication: DEPRESSION
     Dosage: 30 MG; QD; PO, 45 MG; QD; PO, 60 MG; QD; PO, 15 MG; QD; PO
     Route: 048
     Dates: start: 20100916, end: 20100920
  6. REMERGIL (MIRTAZAPINE /01293201/) [Suspect]
     Indication: DEPRESSION
     Dosage: 30 MG; QD; PO, 45 MG; QD; PO, 60 MG; QD; PO, 15 MG; QD; PO
     Route: 048
     Dates: start: 20100726
  7. VENLAFAXINE [Suspect]
     Indication: DEPRESSION
     Dosage: 150 MG; QD; PO, 225 MG; QD; PO
     Route: 048
     Dates: start: 20100727, end: 20100915
  8. VENLAFAXINE [Suspect]
     Indication: DEPRESSION
     Dosage: 150 MG; QD; PO, 225 MG; QD; PO
     Route: 048
     Dates: start: 20100916

REACTIONS (3)
  - ACCOMMODATION DISORDER [None]
  - IMPAIRED DRIVING ABILITY [None]
  - VISUAL ACUITY REDUCED [None]
